FAERS Safety Report 6397730-1 (Version None)
Quarter: 2009Q4

REPORT INFORMATION
  Report Type: 
  Country: None (occurrence: None)
  Receive Date: 20091012
  Receipt Date: 20090929
  Transmission Date: 20100525
  Serious: Yes (Life-Threatening, Other)
  Sender: FDA-Public Use
  Company Number: JP-GENENTECH-290159

PATIENT

DRUGS (1)
  1. AVASTIN [Suspect]
     Indication: LARGE INTESTINE CARCINOMA
     Dosage: 5 MG/KG, Q2W
     Route: 041
     Dates: end: 20090611

REACTIONS (2)
  - INTESTINAL OBSTRUCTION [None]
  - SMALL INTESTINAL PERFORATION [None]
